FAERS Safety Report 23968627 (Version 1)
Quarter: 2024Q2

REPORT INFORMATION
  Report Type: Spontaneous
  Country: GB (occurrence: GB)
  Receive Date: 20240612
  Receipt Date: 20240612
  Transmission Date: 20240715
  Serious: Yes (Disabling)
  Sender: FDA-Public Use
  Company Number: GB-MHRA-TPP18982091C5144401YC1717423523249

PATIENT
  Age: 79 Year
  Sex: Female
  Weight: 67 kg

DRUGS (11)
  1. BISOPROLOL [Suspect]
     Active Substance: BISOPROLOL\BISOPROLOL FUMARATE
     Indication: Ill-defined disorder
     Route: 065
     Dates: start: 20240528
  2. FLUCLOXACILLIN [Concomitant]
     Active Substance: FLUCLOXACILLIN
     Indication: Ill-defined disorder
     Dosage: TAKE ONE 4 TIMES/DAY FOR 7 DAYS, DOSE FORM: TPP YC - PLEASE RECLASSIFY
     Route: 065
     Dates: start: 20240411, end: 20240418
  3. AMOXICILLIN\CLAVULANATE POTASSIUM [Concomitant]
     Active Substance: AMOXICILLIN\CLAVULANATE POTASSIUM
     Indication: Ill-defined disorder
     Dosage: TIME INTERVAL: 0.33333333 DAYS: TAKE ONE 3 TIMES/DAY FOR 14 DAYS., DOSE FORM: TPP YC - PLEASE REC...
     Route: 065
     Dates: start: 20240415, end: 20240429
  4. XAILIN [Concomitant]
     Indication: Ill-defined disorder
     Dosage: APPLY 2 TO 4 TIMES DAILY AS REQUIRED, DOSE FORM: TPP YC - PLEASE RECLASSIFY
     Route: 065
     Dates: start: 20211118
  5. ATENOLOL [Concomitant]
     Active Substance: ATENOLOL
     Indication: Ill-defined disorder
     Dosage: ONE TO BE TAKEN DAILY, DOSE FORM: TPP YC - PLEASE RECLASSIFY
     Route: 065
     Dates: start: 20211118
  6. ACETAMINOPHEN [Concomitant]
     Active Substance: ACETAMINOPHEN
     Indication: Ill-defined disorder
     Dosage: TWO TO BE TAKEN FOUR TIMES DAILY,  DOSE FORM: TPP YC - PLEASE RECLASSIFY
     Route: 065
     Dates: start: 20230711
  7. CALCIUM CARBONATE [Concomitant]
     Active Substance: CALCIUM CARBONATE
     Indication: Ill-defined disorder
     Dosage: TAKE ONE TWICE DAILY, DOSE FORM: TPP YC - PLEASE RECLASSIFY
     Route: 065
     Dates: start: 20211118
  8. CETIRIZINE [Concomitant]
     Active Substance: CETIRIZINE HYDROCHLORIDE
     Indication: Ill-defined disorder
     Dosage: TAKE ONE TABLET ONCE A DAY
     Route: 065
     Dates: start: 20240528
  9. ATORVASTATIN [Concomitant]
     Active Substance: ATORVASTATIN
     Indication: Ill-defined disorder
     Dosage: ONE TO BE TAKEN AT NIGHT, DOSE FORM: TPP YC - PLEASE RECLASSIFY
     Route: 065
     Dates: start: 20211118
  10. FUROSEMIDE [Concomitant]
     Active Substance: FUROSEMIDE
     Indication: Ill-defined disorder
     Dosage: TAKE ONE EACH MORNING, DOSE FORM: TPP YC - PLEASE RECLASSIFY
     Route: 065
     Dates: start: 20211118
  11. APIXABAN [Concomitant]
     Active Substance: APIXABAN
     Indication: Ill-defined disorder
     Dosage: TAKE ONE TWICE DAILY, DOSE FORM: TPP YC - PLEASE RECLASSIFY
     Route: 065
     Dates: start: 20211118

REACTIONS (1)
  - Rash macular [Recovered/Resolved]

NARRATIVE: CASE EVENT DATE: 20240528
